FAERS Safety Report 7830814-7 (Version None)
Quarter: 2011Q4

REPORT INFORMATION
  Report Type: 
  Country: None (occurrence: None)
  Receive Date: 20111021
  Receipt Date: 20111013
  Transmission Date: 20120403
  Serious: Yes (Hospitalization)
  Sender: FDA-Public Use
  Company Number: JP-GLAXOSMITHKLINE-B0750189A

PATIENT
  Sex: Female

DRUGS (3)
  1. ARIXTRA [Suspect]
     Indication: PULMONARY EMBOLISM
     Dosage: 7.5MG PER DAY
     Route: 058
     Dates: start: 20110902, end: 20110906
  2. WARFARIN SODIUM [Concomitant]
     Dosage: 4MG PER DAY
     Route: 048
     Dates: start: 20110902, end: 20110905
  3. ARIXTRA [Suspect]
     Indication: PROPHYLAXIS
     Dosage: 2.5MG PER DAY
     Route: 058
     Dates: start: 20110901, end: 20110901

REACTIONS (4)
  - HAEMATOMA [None]
  - ANAEMIA [None]
  - HAEMORRHAGE [None]
  - OEDEMA PERIPHERAL [None]
